FAERS Safety Report 6673751-6 (Version None)
Quarter: 2010Q2

REPORT INFORMATION
  Report Type: 
  Country: None (occurrence: None)
  Receive Date: 20100407
  Receipt Date: 20100323
  Transmission Date: 20101027
  Serious: Yes (Death, Hospitalization)
  Sender: FDA-Public Use
  Company Number: KADN20100088

PATIENT
  Age: 59 Year
  Sex: Male

DRUGS (8)
  1. MORPHINE [Suspect]
     Indication: DRUG USE FOR UNKNOWN INDICATION
     Route: 048
     Dates: end: 20080101
  2. DILTIAZEM [Suspect]
     Indication: DRUG USE FOR UNKNOWN INDICATION
     Dates: end: 20080101
  3. ALPRAZOLAM [Suspect]
     Indication: DRUG USE FOR UNKNOWN INDICATION
     Route: 048
     Dates: end: 20080101
  4. ESOMEPRAZOLE [Suspect]
     Indication: DRUG USE FOR UNKNOWN INDICATION
     Route: 048
     Dates: end: 20080101
  5. SOTALOL HCL [Suspect]
     Indication: DRUG USE FOR UNKNOWN INDICATION
     Route: 049
     Dates: end: 20080101
  6. ASPIRIN [Suspect]
     Indication: DRUG USE FOR UNKNOWN INDICATION
     Route: 048
     Dates: end: 20080101
  7. HYDROMORPHONE [Suspect]
     Indication: DRUG USE FOR UNKNOWN INDICATION
     Route: 048
  8. ACETAMINOPHEN [Concomitant]

REACTIONS (8)
  - BLOOD PRESSURE DIASTOLIC DECREASED [None]
  - BRADYCARDIA [None]
  - COMPLETED SUICIDE [None]
  - ELECTROCARDIOGRAM QT PROLONGED [None]
  - HEART RATE DECREASED [None]
  - HYPOTENSION [None]
  - NO THERAPEUTIC RESPONSE [None]
  - UNRESPONSIVE TO STIMULI [None]
